FAERS Safety Report 18573661 (Version 1)
Quarter: 2020Q4

REPORT INFORMATION
  Report Type: Spontaneous
  Country: CN (occurrence: CN)
  Receive Date: 20201203
  Receipt Date: 20201203
  Transmission Date: 20210114
  Serious: Yes (Hospitalization)
  Sender: FDA-Public Use
  Company Number: CN-AUROBINDO-AUR-APL-2020-059704

PATIENT
  Age: 40 Year
  Sex: Female

DRUGS (2)
  1. SODIUM CHLORIDE. [Suspect]
     Active Substance: SODIUM CHLORIDE
     Indication: PROPHYLAXIS
     Dosage: 400 MILLILITER, ONCE A DAY
     Route: 065
     Dates: start: 20200821, end: 20200822
  2. EVOMELA [Suspect]
     Active Substance: MELPHALAN HYDROCHLORIDE
     Indication: PLASMA CELL MYELOMA
     Dosage: 200 MILLIGRAM, DAILY
     Route: 042
     Dates: start: 20200821, end: 20200822

REACTIONS (3)
  - Oral mucosa erosion [Recovering/Resolving]
  - Pyrexia [Recovering/Resolving]
  - Pharyngeal erythema [Recovering/Resolving]

NARRATIVE: CASE EVENT DATE: 20200828
